FAERS Safety Report 4921576-1 (Version None)
Quarter: 2006Q1

REPORT INFORMATION
  Report Type: 
  Country: None (occurrence: None)
  Receive Date: 20060223
  Receipt Date: 20060223
  Transmission Date: 20060701
  Serious: Yes (Other)
  Sender: FDA-Public Use
  Company Number: None

PATIENT
  Sex: Male

DRUGS (10)
  1. BOTULINUM TOXIN TYPE A [Suspect]
     Indication: TORTICOLLIS
     Dosage: 100 UNITS   IM
     Route: 030
     Dates: start: 20051203, end: 20051203
  2. ASPIRIN [Concomitant]
  3. DIAZEPAM [Concomitant]
  4. IBUPROFEN [Concomitant]
  5. LISINOPRIL [Concomitant]
  6. ATENOLOL [Concomitant]
  7. TRIAMTERENE AND HYDROCHLOROTHIAZIDE [Concomitant]
  8. POTASSIUM CHLORIDE [Concomitant]
  9. METFORMIN [Concomitant]
  10. VITAMIN E [Concomitant]

REACTIONS (6)
  - FURUNCLE [None]
  - INJECTION SITE VESICLES [None]
  - PENILE ABSCESS [None]
  - PRURITUS [None]
  - SKIN INFECTION [None]
  - STAPHYLOCOCCAL INFECTION [None]
